FAERS Safety Report 5716091-1 (Version None)
Quarter: 2008Q2

REPORT INFORMATION
  Report Type: 
  Country: None (occurrence: None)
  Receive Date: 20080424
  Receipt Date: 20080417
  Transmission Date: 20081010
  Serious: Yes (Hospitalization)
  Sender: FDA-Public Use
  Company Number: CH-ASTRAZENECA-2008PK00830

PATIENT
  Age: 83 Year
  Sex: Male

DRUGS (15)
  1. SEROQUEL [Suspect]
     Indication: PSYCHOTIC DISORDER
     Route: 048
     Dates: start: 20080305, end: 20080313
  2. SEROQUEL [Suspect]
     Indication: AGITATION
     Route: 048
     Dates: start: 20080305, end: 20080313
  3. ENOXAPARIN SODIUM [Suspect]
     Route: 058
     Dates: start: 20080308, end: 20080313
  4. ATACAND [Concomitant]
     Indication: ESSENTIAL HYPERTENSION
     Route: 048
     Dates: start: 20070101, end: 20080313
  5. ALDACTONE [Concomitant]
     Indication: ESSENTIAL HYPERTENSION
     Route: 048
     Dates: end: 20080313
  6. MEMANTINE HCL [Concomitant]
     Route: 048
     Dates: start: 20070101
  7. CALCIMAGON [Concomitant]
     Indication: OSTEOPOROSIS
     Route: 048
     Dates: start: 20070101, end: 20080313
  8. LASIX [Concomitant]
     Indication: ESSENTIAL HYPERTENSION
     Route: 048
     Dates: start: 20070101
  9. SORTIS [Concomitant]
     Indication: HYPERCHOLESTEROLAEMIA
     Route: 048
     Dates: start: 20070101, end: 20080313
  10. DEROXAT [Concomitant]
     Indication: DEPRESSION
     Route: 048
     Dates: start: 20070101
  11. COTALLERG [Concomitant]
     Indication: PRURITUS
     Route: 048
     Dates: start: 20080312, end: 20080313
  12. TRAZODONE HCL [Concomitant]
     Route: 048
     Dates: start: 20070101
  13. LEXOTANIL [Concomitant]
     Indication: ANXIETY DISORDER
     Route: 048
     Dates: start: 20070101, end: 20080313
  14. INSULATARD [Concomitant]
     Route: 058
  15. NEURONTIN [Concomitant]
     Route: 048
     Dates: start: 20080307

REACTIONS (1)
  - TOXIC SKIN ERUPTION [None]
